FAERS Safety Report 6793450-X (Version None)
Quarter: 2010Q2

REPORT INFORMATION
  Report Type: 
  Country: None (occurrence: None)
  Receive Date: 20100624
  Receipt Date: 20100407
  Transmission Date: 20101027
  Serious: Yes (Other)
  Sender: FDA-Public Use
  Company Number: US-MYLANLABS-2010S1004416

PATIENT
  Age: 32 Year
  Sex: Male
  Weight: 122 kg

DRUGS (4)
  1. CLOZAPINE [Suspect]
     Indication: PSYCHOTIC DISORDER
     Dates: end: 20100310
  2. DEPAKOTE [Concomitant]
  3. SEROQUEL [Concomitant]
  4. TOPAMAX [Concomitant]

REACTIONS (1)
  - GRANULOCYTOPENIA [None]
